FAERS Safety Report 25347564 (Version 1)
Quarter: 2025Q2

REPORT INFORMATION
  Report Type: Spontaneous
  Country: US (occurrence: None)
  Receive Date: 20250521
  Receipt Date: 20250521
  Transmission Date: 20250717
  Serious: Yes (Other)
  Sender: FDA-CTU
  Company Number: None

PATIENT
  Sex: Female
  Weight: 81 kg

DRUGS (8)
  1. XYZAL [Suspect]
     Active Substance: LEVOCETIRIZINE DIHYDROCHLORIDE
     Indication: Multiple allergies
     Dosage: 1M TABLET(S) AT BEDTIME ORAL
     Route: 048
  2. ASCORBIC ACID\IRON [Concomitant]
     Active Substance: ASCORBIC ACID\IRON
  3. VITAMINS [Concomitant]
     Active Substance: VITAMINS
  4. fish oil with vitamin D3 [Concomitant]
  5. MAGNESIUM [Concomitant]
     Active Substance: MAGNESIUM
  6. VITAMIN C [Concomitant]
     Active Substance: ASCORBIC ACID
  7. alpha lipoic acid with green tea [Concomitant]
  8. chrimium [Concomitant]

REACTIONS (4)
  - Therapy interrupted [None]
  - Pruritus [None]
  - Skin erosion [None]
  - Rash [None]
